FAERS Safety Report 24276283 (Version 1)
Quarter: 2024Q3

REPORT INFORMATION
  Report Type: Spontaneous
  Country: ES (occurrence: ES)
  Receive Date: 20240903
  Receipt Date: 20240903
  Transmission Date: 20241017
  Serious: Yes (Other)
  Sender: Carnegie Pharmaceuticals
  Company Number: ES-CARNEGIE-000023

PATIENT
  Age: 44 Year
  Sex: Male

DRUGS (2)
  1. LATANOPROST [Suspect]
     Active Substance: LATANOPROST
     Indication: Ocular hypertension
     Route: 061
  2. LATANOPROST [Suspect]
     Active Substance: LATANOPROST
     Indication: Glaucoma
     Route: 061

REACTIONS (2)
  - Glaucoma [Recovered/Resolved]
  - Corneal disorder [Recovered/Resolved]
